FAERS Safety Report 19069101 (Version 1)
Quarter: 2021Q1

REPORT INFORMATION
  Report Type: Spontaneous
  Country: US (occurrence: US)
  Receive Date: 20210326
  Receipt Date: 20210326
  Transmission Date: 20210420
  Serious: Yes (Hospitalization)
  Sender: FDA-Public Use
  Company Number: None

PATIENT
  Sex: Female

DRUGS (27)
  1. NITROOFURANTIN [Concomitant]
  2. NORTIPTYLIN [Concomitant]
  3. ONDANSETRON [Concomitant]
     Active Substance: ONDANSETRON
  4. ADVAIR HFA [Concomitant]
     Active Substance: FLUTICASONE PROPIONATE\SALMETEROL XINAFOATE
  5. MAGNESIUM OX [Concomitant]
  6. TYLENOL [Concomitant]
     Active Substance: ACETAMINOPHEN
  7. DOXYCYCL HYC [Concomitant]
  8. HYDROCO/APAP [Concomitant]
     Active Substance: ACETAMINOPHEN\HYDROCODONE
  9. CARVEDILOL. [Concomitant]
     Active Substance: CARVEDILOL
  10. FOLIC ACID. [Concomitant]
     Active Substance: FOLIC ACID
  11. METHOTREXATE. [Concomitant]
     Active Substance: METHOTREXATE
  12. BISOPRRL/HCTZ [Concomitant]
  13. LISINOPRIL. [Concomitant]
     Active Substance: LISINOPRIL
  14. QVAR REDIHALER [Concomitant]
     Active Substance: BECLOMETHASONE DIPROPIONATE
  15. HUMIRA [Suspect]
     Active Substance: ADALIMUMAB
     Indication: PSORIATIC ARTHROPATHY
     Dosage: ?          OTHER DOSE:1 PEN;?
     Route: 058
     Dates: start: 20150825
  16. CEFDINIR. [Concomitant]
     Active Substance: CEFDINIR
  17. VITAMIN D3 [Concomitant]
     Active Substance: CHOLECALCIFEROL
  18. MUPIROCIN. [Concomitant]
     Active Substance: MUPIROCIN
  19. ZOLPIDEM [Concomitant]
     Active Substance: ZOLPIDEM TARTRATE
  20. ALBUTEROL HFA [Concomitant]
     Active Substance: ALBUTEROL SULFATE
  21. METHENAM HIP [Concomitant]
  22. MONTELUKAST [Concomitant]
     Active Substance: MONTELUKAST SODIUM
  23. PANTOPRAZOLE [Concomitant]
     Active Substance: PANTOPRAZOLE
  24. PREDNISONE. [Concomitant]
     Active Substance: PREDNISONE
  25. PROTONIX [Concomitant]
     Active Substance: PANTOPRAZOLE SODIUM
  26. SUCRALFATE. [Concomitant]
     Active Substance: SUCRALFATE
  27. TIZANIDINE. [Concomitant]
     Active Substance: TIZANIDINE

REACTIONS (2)
  - Hospitalisation [None]
  - Therapy interrupted [None]
